FAERS Safety Report 5662495-5 (Version None)
Quarter: 2008Q1

REPORT INFORMATION
  Report Type: 
  Country: None (occurrence: None)
  Receive Date: 20080310
  Receipt Date: 20080310
  Transmission Date: 20080703
  Serious: Yes (Hospitalization)
  Sender: FDA-Public Use
  Company Number: None

PATIENT
  Age: 23 Year
  Sex: Female

DRUGS (1)
  1. ZOMIG [Suspect]
     Indication: MIGRAINE
     Dosage: TAKE ONE TABLET AT  ONSET REPEAT IN HOUR SL
     Route: 060
     Dates: start: 20080304, end: 20080304

REACTIONS (1)
  - SEROTONIN SYNDROME [None]
